FAERS Safety Report 25425063 (Version 6)
Quarter: 2025Q4

REPORT INFORMATION
  Report Type: Spontaneous
  Country: US (occurrence: US)
  Receive Date: 20250611
  Receipt Date: 20251016
  Transmission Date: 20260118
  Serious: No
  Sender: PFIZER
  Company Number: US-PFIZER INC-202500117134

PATIENT
  Age: 12 Year
  Sex: Female
  Weight: 44 kg

DRUGS (1)
  1. GENOTROPIN [Suspect]
     Active Substance: SOMATROPIN
     Dosage: 1.6 MG

REACTIONS (3)
  - Drug dose omission by device [Unknown]
  - Device information output issue [Unknown]
  - Device power source issue [Unknown]

NARRATIVE: CASE EVENT DATE: 20250602
